FAERS Safety Report 23492335 (Version 2)
Quarter: 2024Q4

REPORT INFORMATION
  Report Type: Spontaneous
  Country: HR (occurrence: HR)
  Receive Date: 20240207
  Receipt Date: 20241111
  Transmission Date: 20250115
  Serious: Yes (Hospitalization, Other)
  Sender: CELLTRION
  Company Number: HR-CELLTRION INC.-2024HR002387

PATIENT

DRUGS (3)
  1. BEVACIZUMAB [Suspect]
     Active Substance: BEVACIZUMAB
     Indication: Hepatocellular carcinoma
     Dosage: UNK, CYCLICAL (12 CYCLES RECEIVED)
     Route: 065
     Dates: start: 202211
  2. BEVACIZUMAB [Suspect]
     Active Substance: BEVACIZUMAB
     Dosage: UNK
     Route: 065
  3. ATEZOLIZUMAB [Suspect]
     Active Substance: ATEZOLIZUMAB
     Indication: Hepatocellular carcinoma
     Dosage: UNK, CYCLICAL
     Route: 065

REACTIONS (4)
  - Autoimmune hepatitis [Recovering/Resolving]
  - Compartment syndrome [Unknown]
  - Cellulitis [Unknown]
  - Intentional product use issue [Unknown]

NARRATIVE: CASE EVENT DATE: 20230701
